FAERS Safety Report 8901448 (Version 1)
Quarter: 2012Q4

REPORT INFORMATION
  Report Type: 
  Country: FR (occurrence: FR)
  Receive Date: 20121108
  Receipt Date: 20121108
  Transmission Date: 20130627
  Serious: Yes (Other)
  Sender: FDA-Public Use
  Company Number: FR-VERTEX PHARMACEUTICAL INC.-2012-024260

PATIENT

DRUGS (3)
  1. INCIVO [Suspect]
     Indication: HEPATITIS C
     Dosage: Dosage Form: Tablet
     Route: 065
  2. RIBAVIRIN [Concomitant]
     Indication: HEPATITIS C
  3. PEGYLATED INTERFERON [Concomitant]
     Indication: HEPATITIS C
     Dosage: Dosage Form: Unspecified
     Route: 065

REACTIONS (2)
  - Adverse reaction [Unknown]
  - Haemoglobin decreased [Unknown]
